FAERS Safety Report 23198060 (Version 2)
Quarter: 2024Q1

REPORT INFORMATION
  Report Type: Spontaneous
  Country: US (occurrence: US)
  Receive Date: 20231117
  Receipt Date: 20240226
  Transmission Date: 20240410
  Serious: No
  Sender: FDA-Public Use
  Company Number: US-SA-SAC20231111000032

PATIENT
  Sex: Male

DRUGS (1)
  1. DUPIXENT [Suspect]
     Active Substance: DUPILUMAB
     Indication: Dermatitis atopic
     Dosage: 300 MG , QOW
     Route: 058
     Dates: start: 20221109

REACTIONS (4)
  - Skin discomfort [Unknown]
  - Injection site rash [Unknown]
  - Dermatitis atopic [Unknown]
  - Rash [Unknown]
